FAERS Safety Report 6051967-X (Version None)
Quarter: 2009Q1

REPORT INFORMATION
  Report Type: 
  Country: None (occurrence: None)
  Receive Date: 20090126
  Receipt Date: 20090120
  Transmission Date: 20090719
  Serious: Yes (Death, Life-Threatening, Hospitalization, Disabling)
  Sender: FDA-Public Use
  Company Number: PL-ABBOTT-08P-129-0484634-00

PATIENT
  Age: 34 Year
  Sex: Female
  Weight: 52 kg

DRUGS (3)
  1. KALETRA [Suspect]
     Indication: HIV INFECTION
     Route: 048
     Dates: start: 20080630, end: 20080819
  2. 3TC [Concomitant]
     Indication: DRUG USE FOR UNKNOWN INDICATION
  3. TDF [Concomitant]
     Indication: DRUG USE FOR UNKNOWN INDICATION

REACTIONS (5)
  - CEREBRAL TOXOPLASMOSIS [None]
  - COMA [None]
  - PNEUMONIA [None]
  - PULMONARY OEDEMA [None]
  - TUBERCULOSIS [None]
